FAERS Safety Report 4551114-7 (Version None)
Quarter: 2005Q1

REPORT INFORMATION
  Report Type: 
  Country: None (occurrence: None)
  Receive Date: 20050107
  Receipt Date: 20041007
  Transmission Date: 20050727
  Serious: Yes (Other)
  Sender: FDA-Public Use
  Company Number: HQWYE648708OCT2004

PATIENT
  Age: 23 Year

DRUGS (2)
  1. ALAVERT [Suspect]
     Dosage: ORAL
     Route: 048
  2. ZITHROMAX [Suspect]
     Dosage: ORAL
     Route: 048

REACTIONS (3)
  - ARRHYTHMIA [None]
  - DRUG INTERACTION [None]
  - MEDICATION ERROR [None]
